FAERS Safety Report 8110504-6 (Version None)
Quarter: 2012Q1

REPORT INFORMATION
  Report Type: 
  Country: None (occurrence: None)
  Receive Date: 20120202
  Receipt Date: 20120124
  Transmission Date: 20120608
  Serious: Yes (Hospitalization)
  Sender: FDA-Public Use
  Company Number: US-ASTRAZENECA-2011SE73907

PATIENT
  Age: 76 Year
  Sex: Female

DRUGS (2)
  1. PULMICORT [Suspect]
     Route: 055
  2. PREVACID [Concomitant]

REACTIONS (7)
  - EAR INFECTION [None]
  - AURICULAR SWELLING [None]
  - DRUG DOSE OMISSION [None]
  - OFF LABEL USE [None]
  - SWELLING FACE [None]
  - ABDOMINAL DISTENSION [None]
  - SINUSITIS [None]
